FAERS Safety Report 18490474 (Version 2)
Quarter: 2020Q4

REPORT INFORMATION
  Report Type: Spontaneous
  Country: BE (occurrence: BE)
  Receive Date: 20201111
  Receipt Date: 20201203
  Transmission Date: 20210114
  Serious: Yes (Death, Life-Threatening, Other)
  Sender: FDA-Public Use
  Company Number: BE-AMGEN-BELSP2020181184

PATIENT

DRUGS (3)
  1. BLEOMYCIN [Concomitant]
     Active Substance: BLEOMYCIN SULFATE
     Indication: GERM CELL CANCER METASTATIC
     Dosage: UNK
  2. FILGRASTIM [Suspect]
     Active Substance: FILGRASTIM
     Indication: PROPHYLAXIS
     Dosage: UNK
     Route: 065
  3. CISPLATIN. [Concomitant]
     Active Substance: CISPLATIN
     Indication: GERM CELL CANCER METASTATIC
     Dosage: UNK

REACTIONS (10)
  - Toxicity to various agents [Fatal]
  - Neutropenic sepsis [Fatal]
  - Haemorrhage [Fatal]
  - Sepsis [Fatal]
  - Neutropenia [Unknown]
  - Pulmonary fibrosis [Fatal]
  - Acute myeloid leukaemia [Fatal]
  - Death [Fatal]
  - Post procedural complication [Fatal]
  - Thrombocytopenia [Unknown]
